FAERS Safety Report 25712475 (Version 1)
Quarter: 2025Q3

REPORT INFORMATION
  Report Type: Spontaneous
  Country: EU (occurrence: EU)
  Receive Date: 20250821
  Receipt Date: 20250821
  Transmission Date: 20251020
  Serious: Yes (Other)
  Sender: PFIZER
  Company Number: None

PATIENT
  Age: 5 Year
  Sex: Male

DRUGS (1)
  1. NGENLA [Suspect]
     Active Substance: SOMATROGON-GHLA
     Indication: Growth hormone deficiency
     Dosage: 8.6 MG, WEEKLY
     Route: 058
     Dates: start: 202403, end: 20250812

REACTIONS (4)
  - Arnold-Chiari malformation [Unknown]
  - Disease progression [Unknown]
  - Spinal cord oedema [Unknown]
  - Syringomyelia [Unknown]

NARRATIVE: CASE EVENT DATE: 20250601
